FAERS Safety Report 8202126-3 (Version None)
Quarter: 2012Q1

REPORT INFORMATION
  Report Type: 
  Country: None (occurrence: None)
  Receive Date: 20120312
  Receipt Date: 20120302
  Transmission Date: 20120608
  Serious: Yes (Hospitalization)
  Sender: FDA-Public Use
  Company Number: US-BAYER-2011-103601

PATIENT
  Age: 32 Year
  Sex: Female
  Weight: 113 kg

DRUGS (9)
  1. CLARITIN [Concomitant]
     Indication: MULTIPLE ALLERGIES
  2. YAZ [Suspect]
     Indication: MENSTRUAL CYCLE MANAGEMENT
  3. YAZ [Suspect]
     Indication: PREMENSTRUAL SYNDROME
     Dosage: UNK
     Dates: start: 20070101, end: 20090101
  4. ASCORBIC ACID [Concomitant]
     Indication: MULTIPLE ALLERGIES
  5. NUVARING [Concomitant]
     Indication: CONTRACEPTION
     Dosage: UNK
     Dates: start: 20091207
  6. YAZ [Suspect]
     Indication: CONTRACEPTION
  7. LOMOTIL [DIPHENOXYLATE HYDROCHLORIDE] [Concomitant]
  8. PHENERGAN [Concomitant]
     Dosage: UNK
     Dates: start: 20091118
  9. IBUPROFEN [Concomitant]
     Indication: HEADACHE

REACTIONS (5)
  - CHOLECYSTITIS CHRONIC [None]
  - GALLBLADDER DISORDER [None]
  - LIVER INJURY [None]
  - PAIN [None]
  - EMOTIONAL DISTRESS [None]
